FAERS Safety Report 13895267 (Version 2)
Quarter: 2018Q1

REPORT INFORMATION
  Report Type: Report from Study
  Country: None (occurrence: BR)
  Receive Date: 20170823
  Receipt Date: 20180306
  Transmission Date: 20180508
  Serious: Yes (Disabling, Other)
  Sender: FDA-Public Use
  Company Number: BR-ABBVIE-17K-020-2075691-00

PATIENT
  Age: 38 Year
  Sex: Female
  Weight: 64 kg

DRUGS (7)
  1. PREDNISONE. [Concomitant]
     Active Substance: PREDNISONE
     Indication: RHEUMATOID ARTHRITIS
  2. OMEPRAZOLE. [Concomitant]
     Active Substance: OMEPRAZOLE
     Indication: DYSPEPSIA
  3. PREGABALIN. [Concomitant]
     Active Substance: PREGABALIN
     Indication: PRODUCT USED FOR UNKNOWN INDICATION
  4. CODEINE [Concomitant]
     Active Substance: CODEINE
     Indication: PAIN
  5. HUMIRA [Suspect]
     Active Substance: ADALIMUMAB
     Indication: RHEUMATOID ARTHRITIS
     Route: 058
     Dates: start: 20170511
  6. FLORATIL [Concomitant]
     Indication: GASTROINTESTINAL DISORDER
  7. MIOSAN [Concomitant]
     Active Substance: CYCLOBENZAPRINE
     Indication: PAIN

REACTIONS (39)
  - Gait inability [Recovered/Resolved]
  - Mobility decreased [Unknown]
  - Immunodeficiency [Not Recovered/Not Resolved]
  - Hypoaesthesia [Recovered/Resolved]
  - Injection site erythema [Recovering/Resolving]
  - Influenza [Recovered/Resolved]
  - Sinusitis [Recovered/Resolved]
  - Diarrhoea [Recovered/Resolved]
  - Sinusitis [Recovered/Resolved]
  - Injection site pruritus [Recovered/Resolved]
  - Depression [Not Recovered/Not Resolved]
  - Blood pressure increased [Recovered/Resolved]
  - Sinusitis [Not Recovered/Not Resolved]
  - Emotional disorder [Unknown]
  - Paraesthesia [Not Recovered/Not Resolved]
  - Catarrh [Recovered/Resolved]
  - Pain in extremity [Recovering/Resolving]
  - Peripheral swelling [Not Recovered/Not Resolved]
  - Joint effusion [Unknown]
  - Musculoskeletal stiffness [Not Recovered/Not Resolved]
  - Gait inability [Not Recovered/Not Resolved]
  - Fibromyalgia [Recovered/Resolved]
  - Neck pain [Recovered/Resolved]
  - Drug effect incomplete [Unknown]
  - Influenza [Recovered/Resolved]
  - Arthritis [Unknown]
  - Dysphonia [Recovered/Resolved]
  - Dysphonia [Recovered/Resolved]
  - Injection site pain [Not Recovered/Not Resolved]
  - Arthralgia [Recovering/Resolving]
  - Pain in extremity [Not Recovered/Not Resolved]
  - Dysstasia [Unknown]
  - Haematemesis [Recovering/Resolving]
  - Diarrhoea [Recovered/Resolved]
  - Fibromyalgia [Not Recovered/Not Resolved]
  - Influenza [Recovered/Resolved]
  - Dysphonia [Recovered/Resolved]
  - Arthralgia [Not Recovered/Not Resolved]
  - Hypoaesthesia [Not Recovered/Not Resolved]

NARRATIVE: CASE EVENT DATE: 2017
